FAERS Safety Report 14263226 (Version 2)
Quarter: 2018Q1

REPORT INFORMATION
  Report Type: Report from Study
  Country: US (occurrence: US)
  Receive Date: 20171208
  Receipt Date: 20180120
  Transmission Date: 20180508
  Serious: Yes (Hospitalization)
  Sender: FDA-Public Use
  Company Number: US-AMGEN-USASL2017180599

PATIENT
  Age: 69 Year
  Sex: Female

DRUGS (1)
  1. REPATHA [Suspect]
     Active Substance: EVOLOCUMAB
     Indication: HYPERLIPIDAEMIA
     Dosage: 140 MG/ML, Q2WK
     Route: 058

REACTIONS (13)
  - Pain [Recovered/Resolved]
  - Mobility decreased [Recovered/Resolved]
  - Pain in jaw [Unknown]
  - Dyspnoea [Unknown]
  - Myalgia [Not Recovered/Not Resolved]
  - Chest discomfort [Unknown]
  - Musculoskeletal discomfort [Recovered/Resolved]
  - Blood pressure abnormal [Unknown]
  - Chest pain [Unknown]
  - Pyrexia [Recovered/Resolved]
  - Arthralgia [Recovered/Resolved]
  - Ear pain [Unknown]
  - Injection site pain [Unknown]

NARRATIVE: CASE EVENT DATE: 2015
